FAERS Safety Report 16816690 (Version 1)
Quarter: 2019Q3

REPORT INFORMATION
  Report Type: Spontaneous
  Country: US (occurrence: US)
  Receive Date: 20190917
  Receipt Date: 20190917
  Transmission Date: 20191005
  Serious: Yes (Hospitalization)
  Sender: FDA-Public Use
  Company Number: US-SAREPTA THERAPEUTICS INC.-SRP2019-000534

PATIENT
  Sex: Male

DRUGS (1)
  1. EXONDYS 51 [Suspect]
     Active Substance: ETEPLIRSEN
     Indication: DUCHENNE MUSCULAR DYSTROPHY
     Dosage: UNK
     Route: 065
     Dates: start: 20180711

REACTIONS (3)
  - Acidosis [Recovering/Resolving]
  - Dehydration [Recovering/Resolving]
  - Constipation [Recovering/Resolving]
